FAERS Safety Report 7546214-3 (Version None)
Quarter: 2011Q2

REPORT INFORMATION
  Report Type: 
  Country: None (occurrence: None)
  Receive Date: 20110614
  Receipt Date: 20031114
  Transmission Date: 20111010
  Serious: Yes (Death, Hospitalization)
  Sender: FDA-Public Use
  Company Number: PHFR2003GB03467

PATIENT
  Sex: Female

DRUGS (8)
  1. BECLOMETHASONE DIPROPIONATE [Concomitant]
  2. LACTULOSE [Concomitant]
     Dosage: 10 ML, BID
     Route: 065
  3. CLOZAPINE [Suspect]
     Dosage: 475 MG, QD
     Route: 048
     Dates: start: 20010705
  4. OXYBUTYNIN [Concomitant]
     Dosage: 5 MG, BID
     Route: 065
  5. VALPROATE SODIUM [Concomitant]
     Dosage: 500 MG, BID
     Route: 065
  6. HYOSCINE [Concomitant]
     Dosage: 300 MG, BID
     Route: 065
  7. CITALOPRAM [Concomitant]
     Dosage: 20 MG, QD
     Route: 048
  8. ALBUTEROL [Concomitant]

REACTIONS (2)
  - URINARY TRACT INFECTION [None]
  - PNEUMONIA [None]
